FAERS Safety Report 6315696-7 (Version None)
Quarter: 2009Q3

REPORT INFORMATION
  Report Type: 
  Country: None (occurrence: None)
  Receive Date: 20090818
  Receipt Date: 20090804
  Transmission Date: 20100115
  Serious: Yes (Death, Other)
  Sender: FDA-Public Use
  Company Number: A-NJ2009-26713

PATIENT
  Age: 26 Year
  Sex: Female

DRUGS (2)
  1. TRACLEER [Suspect]
     Indication: PULMONARY HYPERTENSION
     Dosage: ORAL, ORAL
     Route: 048
     Dates: start: 20090401, end: 20090621
  2. TRACLEER [Suspect]
     Indication: PULMONARY HYPERTENSION
     Dosage: ORAL, ORAL
     Route: 048
     Dates: start: 20080401

REACTIONS (7)
  - ALANINE AMINOTRANSFERASE INCREASED [None]
  - ASPARTATE AMINOTRANSFERASE INCREASED [None]
  - BLOOD ALKALINE PHOSPHATASE INCREASED [None]
  - LIMB OPERATION [None]
  - LIVER FUNCTION TEST ABNORMAL [None]
  - SUDDEN DEATH [None]
  - TREATMENT NONCOMPLIANCE [None]
